FAERS Safety Report 20764220 (Version 1)
Quarter: 2022Q2

REPORT INFORMATION
  Report Type: Spontaneous
  Country: CN (occurrence: CN)
  Receive Date: 20220428
  Receipt Date: 20220428
  Transmission Date: 20220721
  Serious: Yes (Other)
  Sender: FDA-Public Use
  Company Number: CN-JNJFOC-20220441134

PATIENT

DRUGS (1)
  1. RISPERDAL [Suspect]
     Active Substance: RISPERIDONE
     Indication: Product used for unknown indication
     Route: 065

REACTIONS (34)
  - Pancytopenia [Unknown]
  - Arrhythmia [Unknown]
  - Thrombocytopenia [Unknown]
  - Urinary retention [Unknown]
  - Hepatic function abnormal [Unknown]
  - Coagulopathy [Unknown]
  - Hyperlipidaemia [Unknown]
  - Nasal obstruction [Unknown]
  - Metabolic disorder [Unknown]
  - Face oedema [Unknown]
  - Language disorder [Unknown]
  - Galactorrhoea [Unknown]
  - Extrapyramidal disorder [Unknown]
  - Constipation [Unknown]
  - Dyskinesia [Unknown]
  - Akathisia [Unknown]
  - Dry mouth [Unknown]
  - Salivary hypersecretion [Unknown]
  - Vision blurred [Unknown]
  - Palpitations [Unknown]
  - Tremor [Unknown]
  - Hypertonia [Unknown]
  - Menstrual disorder [Unknown]
  - Restlessness [Unknown]
  - Weight increased [Unknown]
  - Asthenia [Unknown]
  - Hypotension [Unknown]
  - Musculoskeletal stiffness [Unknown]
  - Dysphagia [Unknown]
  - Dizziness [Unknown]
  - Somnolence [Unknown]
  - Urinary incontinence [Unknown]
  - Headache [Unknown]
  - Pain in extremity [Unknown]
